FAERS Safety Report 4303202-8 (Version None)
Quarter: 2004Q1

REPORT INFORMATION
  Report Type: 
  Country: None (occurrence: None)
  Receive Date: 20040126
  Receipt Date: 20031010
  Transmission Date: 20041129
  Serious: No
  Sender: FDA-Public Use
  Company Number: USA030948427

PATIENT
  Age: 42 Year
  Sex: Male
  Weight: 82 kg

DRUGS (1)
  1. STRATTERA [Suspect]
     Dosage: 80 MG/DAY
     Dates: start: 20030919

REACTIONS (4)
  - ERECTILE DYSFUNCTION [None]
  - NAUSEA [None]
  - POLLAKIURIA [None]
  - SEXUAL DYSFUNCTION [None]
